FAERS Safety Report 7661084-0 (Version None)
Quarter: 2011Q3

REPORT INFORMATION
  Report Type: 
  Country: None (occurrence: None)
  Receive Date: 20110805
  Receipt Date: 20100922
  Transmission Date: 20111222
  Serious: No
  Sender: FDA-Public Use
  Company Number: US-ABBOTT-10P-163-0672841-00

PATIENT
  Sex: Female

DRUGS (3)
  1. NIASPAN [Suspect]
     Route: 048
  2. UNKNOWN HYPERTENSION MEDICATION [Concomitant]
     Indication: PRODUCT USED FOR UNKNOWN INDICATION
  3. NIASPAN [Suspect]
     Indication: PRODUCT USED FOR UNKNOWN INDICATION
     Route: 048
     Dates: start: 20100821

REACTIONS (3)
  - PRURITUS [None]
  - FLUSHING [None]
  - FEELING HOT [None]
